FAERS Safety Report 6977922-0 (Version None)
Quarter: 2010Q3

REPORT INFORMATION
  Report Type: 
  Country: None (occurrence: None)
  Receive Date: 20100913
  Receipt Date: 20100902
  Transmission Date: 20110219
  Serious: Yes (Hospitalization)
  Sender: FDA-Public Use
  Company Number: US-US-EMD SERONO, INC.-7016127

PATIENT
  Sex: Female

DRUGS (3)
  1. REBIF [Suspect]
     Indication: MULTIPLE SCLEROSIS
     Route: 058
     Dates: start: 20100811
  2. UNSPECIFIED MEDICATION FOR THYROID DISORDER [Concomitant]
     Indication: THYROID DISORDER
  3. DEPRESSION [Concomitant]
     Indication: DEPRESSION

REACTIONS (2)
  - FATIGUE [None]
  - ILEITIS [None]
